FAERS Safety Report 4554135-3 (Version None)
Quarter: 2005Q1

REPORT INFORMATION
  Report Type: 
  Country: None (occurrence: None)
  Receive Date: 20050118
  Receipt Date: 20030605
  Transmission Date: 20050727
  Serious: Yes (Hospitalization, Disabling, Other)
  Sender: FDA-Public Use
  Company Number: US-MERCK-0306USA00860

PATIENT
  Age: 47 Year
  Sex: Male

DRUGS (1)
  1. VIOXX [Suspect]
     Route: 048

REACTIONS (12)
  - ADVERSE EVENT [None]
  - ATELECTASIS [None]
  - CEREBROVASCULAR ACCIDENT [None]
  - DEPRESSED LEVEL OF CONSCIOUSNESS [None]
  - DRUG HYPERSENSITIVITY [None]
  - FALL [None]
  - HAEMATOMA [None]
  - HYPERTENSION [None]
  - MULTIPLE FRACTURES [None]
  - MUSCLE SPASMS [None]
  - POLYTRAUMATISM [None]
  - RIB FRACTURE [None]
